FAERS Safety Report 25944289 (Version 1)
Quarter: 2025Q4

REPORT INFORMATION
  Report Type: Report from Study
  Country: EG (occurrence: EG)
  Receive Date: 20251021
  Receipt Date: 20251021
  Transmission Date: 20260117
  Serious: Yes (Other)
  Sender: NOVARTIS
  Company Number: EG-002147023-NVSC2025EG160141

PATIENT
  Age: 1 Year
  Sex: Female

DRUGS (1)
  1. GILENYA [Suspect]
     Active Substance: FINGOLIMOD HYDROCHLORIDE
     Indication: Multiple sclerosis
     Dosage: 0.5 MG (ONE AND HALF YEAR AGO FROM MRD 8-OCT-2025)
     Route: 048

REACTIONS (2)
  - Macular oedema [Unknown]
  - Product use issue [Unknown]
